FAERS Safety Report 11394980 (Version 1)
Quarter: 2015Q3

REPORT INFORMATION
  Report Type: Report from Study
  Country: US (occurrence: US)
  Receive Date: 20150819
  Receipt Date: 20150819
  Transmission Date: 20151125
  Serious: Yes (Other)
  Sender: FDA-Public Use
  Company Number: US-SA-2014SA052841

PATIENT
  Age: 46 Year
  Sex: Female

DRUGS (4)
  1. AUBAGIO [Suspect]
     Active Substance: TERIFLUNOMIDE
     Indication: MULTIPLE SCLEROSIS
     Route: 048
     Dates: start: 20140418
  2. AUBAGIO [Suspect]
     Active Substance: TERIFLUNOMIDE
     Indication: MULTIPLE SCLEROSIS
     Route: 048
     Dates: end: 20140301
  3. AUBAGIO [Suspect]
     Active Substance: TERIFLUNOMIDE
     Indication: MULTIPLE SCLEROSIS
     Route: 048
     Dates: start: 20140812
  4. AUBAGIO [Suspect]
     Active Substance: TERIFLUNOMIDE
     Indication: MULTIPLE SCLEROSIS
     Route: 048
     Dates: start: 20130927, end: 201401

REACTIONS (24)
  - Dry skin [Unknown]
  - Bedridden [Unknown]
  - Multiple sclerosis relapse [Unknown]
  - Decreased appetite [Unknown]
  - Crying [Unknown]
  - Skin exfoliation [Unknown]
  - Weight decreased [Recovering/Resolving]
  - Nasopharyngitis [Unknown]
  - Seizure [Unknown]
  - Skin mass [Unknown]
  - Skin disorder [Unknown]
  - Memory impairment [Unknown]
  - Depression [Unknown]
  - Nausea [Unknown]
  - Diarrhoea [Unknown]
  - Diarrhoea [Unknown]
  - Chronic obstructive pulmonary disease [Unknown]
  - Balance disorder [Unknown]
  - Neuropathy peripheral [Unknown]
  - Dizziness [Unknown]
  - Fall [Unknown]
  - Skin haemorrhage [Unknown]
  - Fatigue [Unknown]
  - Drug dose omission [Unknown]

NARRATIVE: CASE EVENT DATE: 201404
